FAERS Safety Report 5601315-1 (Version None)
Quarter: 2008Q1

REPORT INFORMATION
  Report Type: 
  Country: None (occurrence: None)
  Receive Date: 20080122
  Receipt Date: 20080122
  Transmission Date: 20080703
  Serious: Yes (Hospitalization)
  Sender: FDA-Public Use
  Company Number: None

PATIENT
  Age: 79 Year
  Sex: Male

DRUGS (3)
  1. WARFARIN SODIUM [Suspect]
     Indication: ATRIAL FIBRILLATION
     Dosage: 5MG EVERY DAY PO
     Route: 048
     Dates: start: 20070907
  2. WARFARIN SODIUM [Suspect]
     Indication: INFECTION
     Dosage: 5MG EVERY DAY PO
     Route: 048
     Dates: start: 20070907
  3. AMOXICILLIN [Suspect]
     Dosage: 500MG TID PO
     Route: 048
     Dates: start: 20071121, end: 20071201

REACTIONS (5)
  - COUGH [None]
  - HAEMATOCRIT ABNORMAL [None]
  - HAEMOGLOBIN ABNORMAL [None]
  - HAEMORRHAGE [None]
  - INTERNATIONAL NORMALISED RATIO INCREASED [None]
